FAERS Safety Report 9413155 (Version 1)
Quarter: 2013Q3

REPORT INFORMATION
  Report Type: Spontaneous
  Country: PT (occurrence: PT)
  Receive Date: 20130722
  Receipt Date: 20130722
  Transmission Date: 20140515
  Serious: Yes (Other)
  Sender: FDA-Public Use
  Company Number: PT-BRISTOL-MYERS SQUIBB COMPANY-19084599

PATIENT
  Age: 56 Year
  Sex: Male

DRUGS (1)
  1. EFAVIRENZ [Suspect]
     Dates: start: 200405, end: 200705

REACTIONS (4)
  - Diabetes mellitus [Unknown]
  - Transaminases increased [Recovered/Resolved]
  - Hypercholesterolaemia [Recovered/Resolved]
  - Hypertriglyceridaemia [Recovered/Resolved]
